FAERS Safety Report 6011085-3 (Version None)
Quarter: 2008Q4

REPORT INFORMATION
  Report Type: 
  Country: None (occurrence: None)
  Receive Date: 20081218
  Receipt Date: 20081205
  Transmission Date: 20090506
  Serious: No
  Sender: FDA-Public Use
  Company Number: US-BAYER-200840205NA

PATIENT
  Age: 56 Year
  Sex: Male

DRUGS (4)
  1. CAMPATH [Suspect]
     Indication: CHRONIC LYMPHOCYTIC LEUKAEMIA
     Route: 042
  2. STEROIDS [Concomitant]
     Indication: PREMEDICATION
  3. ACETAMINOPHEN [Concomitant]
     Indication: PREMEDICATION
  4. BENADRYL [Concomitant]
     Indication: PREMEDICATION

REACTIONS (1)
  - RASH [None]
